FAERS Safety Report 13985431 (Version 3)
Quarter: 2018Q1

REPORT INFORMATION
  Report Type: Report from Study
  Country: TR (occurrence: TR)
  Receive Date: 20170919
  Receipt Date: 20180216
  Transmission Date: 20180508
  Serious: Yes (Death, Hospitalization)
  Sender: FDA-Public Use
  Company Number: TR-ROCHE-1978212

PATIENT
  Sex: Male
  Weight: 60 kg

DRUGS (1)
  1. ATEZOLIZUMAB. [Suspect]
     Active Substance: ATEZOLIZUMAB
     Indication: BLADDER CANCER STAGE IV
     Dosage: 1200 MG/ML
     Route: 042
     Dates: start: 20170727

REACTIONS (2)
  - Performance status decreased [Unknown]
  - Hypophagia [Fatal]
